FAERS Safety Report 14060806 (Version 1)
Quarter: 2017Q4

REPORT INFORMATION
  Report Type: Spontaneous
  Country: GB (occurrence: GB)
  Receive Date: 20171009
  Receipt Date: 20171009
  Transmission Date: 20180321
  Serious: Yes (Other)
  Sender: FDA-Public Use
  Company Number: GB-B. BRAUN MEDICAL INC.-2029319

PATIENT
  Age: 57 Year
  Sex: Female
  Weight: 60 kg

DRUGS (6)
  1. LEVOTHYROXINE. [Concomitant]
     Active Substance: LEVOTHYROXINE
     Dates: start: 20151113
  2. PROPANOLOL [Concomitant]
     Active Substance: PROPRANOLOL HYDROCHLORIDE
     Dates: start: 20150620
  3. OTOMIZE (DEXAMETHASONE, GLACIAL ACETIC ACID, NEOMYCIN SULFATE) [Concomitant]
     Dates: start: 20160329, end: 20160405
  4. METRONIDAZOLE. [Suspect]
     Active Substance: METRONIDAZOLE
     Dates: start: 20151206
  5. CEFALEXIN [Concomitant]
     Active Substance: CEPHALEXIN
     Dates: start: 20160124, end: 20160131
  6. PAROXETINE. [Concomitant]
     Active Substance: PAROXETINE
     Dates: start: 20151113

REACTIONS (3)
  - Tremor [Recovered/Resolved]
  - Confusional state [Recovered/Resolved]
  - Paraesthesia [Recovered/Resolved]

NARRATIVE: CASE EVENT DATE: 20160420
